FAERS Safety Report 23732346 (Version 1)
Quarter: 2024Q2

REPORT INFORMATION
  Report Type: Report from Study
  Country: CA (occurrence: None)
  Receive Date: 20240411
  Receipt Date: 20240411
  Transmission Date: 20240716
  Serious: Yes (Other)
  Sender: FDA-Public Use
  Company Number: 2024A087005

PATIENT
  Age: 26675 Day
  Sex: Female

DRUGS (6)
  1. FASENRA [Suspect]
     Active Substance: BENRALIZUMAB
     Indication: Asthma
     Route: 058
     Dates: start: 20191031
  2. PULMICORT TURBUHALER [Concomitant]
     Active Substance: BUDESONIDE
  3. PLAQUENIL [Concomitant]
     Active Substance: HYDROXYCHLOROQUINE SULFATE
  4. METHOTREXATE [Concomitant]
     Active Substance: METHOTREXATE
  5. TYLENOL ARTHRITIQUE [Concomitant]
  6. CELEBREX [Concomitant]
     Active Substance: CELECOXIB

REACTIONS (2)
  - Teratoma [Unknown]
  - Inappropriate schedule of product administration [Unknown]

NARRATIVE: CASE EVENT DATE: 20231222
